FAERS Safety Report 18310466 (Version 3)
Quarter: 2020Q4

REPORT INFORMATION
  Report Type: Report from Study
  Country: AU (occurrence: AU)
  Receive Date: 20200925
  Receipt Date: 20201218
  Transmission Date: 20210113
  Serious: Yes (Other)
  Sender: FDA-Public Use
  Company Number: AU-EMD SERONO-9121579

PATIENT
  Sex: Female

DRUGS (2)
  1. MAVENCLAD [Suspect]
     Active Substance: CLADRIBINE
     Indication: MULTIPLE SCLEROSIS
     Dosage: FIRST YEAR THERAPY.
     Dates: start: 20181006
  2. MAVENCLAD [Suspect]
     Active Substance: CLADRIBINE
     Dosage: SECOND YEAR FIRST WEEK THERAPY.
     Dates: start: 20200120, end: 20200124

REACTIONS (8)
  - Iritis [Not Recovered/Not Resolved]
  - Retinitis [Recovering/Resolving]
  - Eczema [Unknown]
  - Influenza like illness [Not Recovered/Not Resolved]
  - White blood cell count decreased [Unknown]
  - Fatigue [Not Recovered/Not Resolved]
  - Lymphocyte count decreased [Recovering/Resolving]
  - Stress [Not Recovered/Not Resolved]
